FAERS Safety Report 18709783 (Version 7)
Quarter: 2022Q2

REPORT INFORMATION
  Report Type: Report from Study
  Country: DE (occurrence: DE)
  Receive Date: 20210106
  Receipt Date: 20220511
  Transmission Date: 20220721
  Serious: Yes (Hospitalization, Other)
  Sender: FDA-Public Use
  Company Number: DE-BRISTOL-MYERS SQUIBB COMPANY-BMS-2020-110736

PATIENT
  Age: 77 Year
  Sex: Male
  Weight: 72 kg

DRUGS (18)
  1. NIVOLUMAB [Suspect]
     Active Substance: NIVOLUMAB
     Indication: Malignant melanoma
     Dosage: THE MOST RECENT DOSE ON 09-DEC-2020
     Route: 042
     Dates: start: 20200916
  2. RAMIPRIL [Concomitant]
     Active Substance: RAMIPRIL
     Indication: Product used for unknown indication
     Dosage: 5 MILLIGRAM
     Route: 048
     Dates: start: 20200824, end: 20210319
  3. HYDROCHLOROTHIAZIDE [Concomitant]
     Active Substance: HYDROCHLOROTHIAZIDE
     Indication: Product used for unknown indication
     Dosage: 12.5 MILLIGRAM
     Route: 048
     Dates: start: 20200824, end: 20210319
  4. SOLARAZE [Concomitant]
     Active Substance: DICLOFENAC SODIUM
     Indication: Product used for unknown indication
     Dosage: 1 DOSAGE FORM = 1 UNIT NOS-ONGOING
     Route: 061
     Dates: start: 20200615
  5. ARCOXIA [Concomitant]
     Active Substance: ETORICOXIB
     Indication: Immune-mediated arthritis
     Route: 048
     Dates: start: 20201021, end: 20201218
  6. DICLOFENAC [Concomitant]
     Active Substance: DICLOFENAC
     Indication: Immune-mediated arthritis
     Dosage: UNK
     Route: 061
     Dates: start: 20201104
  7. PREDNISOLONE [Concomitant]
     Active Substance: PREDNISOLONE
     Indication: Immune-mediated arthritis
     Dosage: 20 MILLIGRAM
     Route: 048
     Dates: start: 20201116, end: 20201116
  8. PREDNISOLONE [Concomitant]
     Active Substance: PREDNISOLONE
     Dosage: 40 MILLIGRAM
     Route: 048
     Dates: start: 20201117, end: 20201119
  9. PREDNISOLONE [Concomitant]
     Active Substance: PREDNISOLONE
     Dosage: 20 MILLIGRAM
     Route: 048
     Dates: start: 20201120, end: 20201121
  10. PREDNISOLONE [Concomitant]
     Active Substance: PREDNISOLONE
     Dosage: 10 MILLIGRAM
     Route: 048
     Dates: start: 20201122, end: 20201128
  11. PREDNISOLONE [Concomitant]
     Active Substance: PREDNISOLONE
     Dosage: 8 MILLIGRAM
     Route: 048
     Dates: start: 20201129, end: 20201205
  12. PREDNISOLONE [Concomitant]
     Active Substance: PREDNISOLONE
     Dosage: 6 MILLIGRAM
     Route: 048
     Dates: start: 20201206, end: 20201209
  13. PREDNISOLONE [Concomitant]
     Active Substance: PREDNISOLONE
     Dosage: 5 MILLIGRAM
     Route: 048
     Dates: start: 20201210, end: 20201216
  14. PREDNISOLONE [Concomitant]
     Active Substance: PREDNISOLONE
     Dosage: 8 MILLIGRAM
     Route: 048
     Dates: start: 20201217, end: 20201220
  15. PREDNISOLONE [Concomitant]
     Active Substance: PREDNISOLONE
     Dosage: 6 MILLIGRAM
     Route: 048
     Dates: start: 20201221, end: 20201229
  16. PANTOPRAZOLE [Concomitant]
     Active Substance: PANTOPRAZOLE
     Indication: Product used for unknown indication
     Dosage: 40 MILLIGRAM
     Route: 048
     Dates: start: 20201116, end: 20210113
  17. ASPIRIN SODIUM [Concomitant]
     Active Substance: ASPIRIN SODIUM
     Indication: Product used for unknown indication
     Dosage: 100 MILLIGRAM-ONGOING
     Route: 048
     Dates: start: 20200824
  18. DEXPANTHENOL [Concomitant]
     Active Substance: DEXPANTHENOL
     Indication: Dermatitis allergic
     Dosage: 1 DOSAGE FORM = 2 UNIT NOS-ONGOING
     Route: 061
     Dates: start: 20200921

REACTIONS (1)
  - Immune-mediated enterocolitis [Recovered/Resolved]

NARRATIVE: CASE EVENT DATE: 20201222
